FAERS Safety Report 9140392 (Version 1)
Quarter: 2013Q1

REPORT INFORMATION
  Report Type: Spontaneous
  Country: IE (occurrence: IE)
  Receive Date: 20130305
  Receipt Date: 20130305
  Transmission Date: 20140127
  Serious: Yes (Hospitalization, Other)
  Sender: FDA-Public Use
  Company Number: IE-ASTRAZENECA-2013SE14177

PATIENT
  Age: 4 Month
  Sex: Female

DRUGS (5)
  1. SYNAGIS [Suspect]
     Route: 030
     Dates: start: 20121227
  2. FERINSOL [Concomitant]
  3. ABIDEC [Concomitant]
  4. GAVISCON [Concomitant]
  5. INFACOL-C COLIC [Concomitant]

REACTIONS (3)
  - Varicella [Unknown]
  - Gastrooesophageal reflux disease [Unknown]
  - Irritability [Unknown]
